FAERS Safety Report 9196359 (Version 1)
Quarter: 2013Q1

REPORT INFORMATION
  Report Type: Spontaneous
  Country: FI (occurrence: FI)
  Receive Date: 20130328
  Receipt Date: 20130328
  Transmission Date: 20140127
  Serious: Yes (Other)
  Sender: FDA-Public Use
  Company Number: FI-PFIZER INC-2013085783

PATIENT
  Age: 49 Year
  Sex: Female

DRUGS (3)
  1. LYRICA [Suspect]
     Indication: POST-TRAUMATIC PAIN
     Dosage: UNK
     Dates: end: 201302
  2. SOMAC [Concomitant]
     Dosage: 40 MG, UNK
  3. PANADOL [Concomitant]
     Indication: PAIN
     Dosage: UNK

REACTIONS (7)
  - Intentional overdose [Not Recovered/Not Resolved]
  - Medication error [Not Recovered/Not Resolved]
  - Withdrawal syndrome [Not Recovered/Not Resolved]
  - Nausea [Not Recovered/Not Resolved]
  - Dysphagia [Unknown]
  - Weight decreased [Unknown]
  - Drug ineffective [Unknown]
